FAERS Safety Report 9716267 (Version 1)
Quarter: 2013Q4

REPORT INFORMATION
  Report Type: Spontaneous
  Country: US (occurrence: US)
  Receive Date: 20131127
  Receipt Date: 20131127
  Transmission Date: 20140711
  Serious: No
  Sender: FDA-Public Use
  Company Number: US-ENDO PHARMACEUTICALS INC.-HCDA20120104

PATIENT
  Sex: Male
  Weight: 166.16 kg

DRUGS (3)
  1. HYDROCODONE/ACETAMINOPHEN [Suspect]
     Indication: INTERVERTEBRAL DISC DEGENERATION
     Dosage: 50/3250 MG
     Route: 048
  2. HYDROCODONE/ACETAMINOPHEN [Suspect]
     Indication: FIBROMYALGIA
  3. HYDROCODONE/ACETAMINOPHEN [Suspect]
     Indication: PAIN

REACTIONS (2)
  - Foreign body [Not Recovered/Not Resolved]
  - Drug ineffective [Not Recovered/Not Resolved]
